FAERS Safety Report 7206916-5 (Version None)
Quarter: 2011Q1

REPORT INFORMATION
  Report Type: 
  Country: None (occurrence: None)
  Receive Date: 20110103
  Receipt Date: 20101215
  Transmission Date: 20110831
  Serious: Yes (Congenital Anomaly)
  Sender: FDA-Public Use
  Company Number: A0679398A

PATIENT
  Sex: Male

DRUGS (1)
  1. PAXIL [Suspect]

REACTIONS (5)
  - NEPHROPATHY [None]
  - CONGENITAL ANOMALY [None]
  - COARCTATION OF THE AORTA [None]
  - HYPERTENSION [None]
  - DRUG EXPOSURE DURING PREGNANCY [None]
